FAERS Safety Report 15185349 (Version 10)
Quarter: 2021Q3

REPORT INFORMATION
  Report Type: Report from Study
  Country: IT (occurrence: IT)
  Receive Date: 20180723
  Receipt Date: 20210910
  Transmission Date: 20211014
  Serious: Yes (Other)
  Sender: FDA-Public Use
  Company Number: IT-SHIRE-IT201815770

PATIENT
  Age: 69 Year
  Sex: Male
  Weight: 54 kg

DRUGS (22)
  1. ENDOXAN [Concomitant]
     Active Substance: CYCLOPHOSPHAMIDE
     Indication: FACTOR VIII INHIBITION
     Dosage: UNK
     Route: 065
  2. FACTOR IX [Concomitant]
     Active Substance: COAGULATION FACTOR IX HUMAN
     Dosage: UNK
     Route: 065
  3. FACTOR VIII INHIBITOR BYPASSING FRACTION [Concomitant]
     Active Substance: ANTI-INHIBITOR COAGULANT COMPLEX
     Dosage: 2000 INTERNATIONAL UNIT, QD
     Route: 042
     Dates: start: 20180206, end: 20180206
  4. DELTACORTENE [Concomitant]
     Active Substance: PREDNISONE
     Indication: IMMUNOSUPPRESSION
     Route: 065
  5. PREDNISONE. [Concomitant]
     Active Substance: PREDNISONE
     Indication: FACTOR VIII INHIBITION
     Dosage: 25 MILLIGRAM, QD
     Route: 048
     Dates: start: 20180131, end: 20180221
  6. FACTOR X (STUART PROWER FACTOR) [Concomitant]
     Active Substance: COAGULATION FACTOR X HUMAN
     Dosage: UNK
     Route: 065
  7. RITUXIMAB. [Concomitant]
     Active Substance: RITUXIMAB
     Indication: IMMUNOSUPPRESSION
  8. FACTOR II (PROTHROMBIN) [Concomitant]
     Active Substance: PROTHROMBIN
     Indication: HAEMORRHAGE
     Dosage: 500 INTERNATIONAL UNIT, QD
     Route: 042
     Dates: start: 20180206, end: 20180218
  9. LASIX [Concomitant]
     Active Substance: FUROSEMIDE
     Indication: PROPHYLAXIS
     Dosage: 40 MILLIGRAM, QD
     Route: 042
     Dates: start: 20180131, end: 20180207
  10. RITUXIMAB. [Concomitant]
     Active Substance: RITUXIMAB
     Indication: FACTOR VIII INHIBITION
     Dosage: 500 MILLIGRAM, 1/WEEK
     Route: 042
     Dates: start: 20180209, end: 20180306
  11. INSULIN LISPRO [Concomitant]
     Active Substance: INSULIN LISPRO
     Indication: DIABETES MELLITUS
     Dosage: 24 INTERNATIONAL UNIT, QD
     Route: 058
     Dates: start: 20180126
  12. CYCLOPHOSPHAMIDE. [Concomitant]
     Active Substance: CYCLOPHOSPHAMIDE
     Indication: FACTOR VIII INHIBITION
     Dosage: 50 MILLIGRAM, QOD
     Route: 048
     Dates: start: 20180314
  13. COAGULATION FACTOR VIII (PORCINE, RECOMBINANT) [Suspect]
     Active Substance: ANTIHEMOPHILIC FACTOR PORCINE, B-DOMAIN TRUNCATED RECOMBINANT
     Indication: HAEMORRHAGE
     Dosage: 200 INTERNATIONAL UNIT/KILOGRAM
     Route: 042
     Dates: start: 20180221
  14. PANTOPRAZOLE [Concomitant]
     Active Substance: PANTOPRAZOLE
     Indication: PROPHYLAXIS AGAINST GASTROINTESTINAL ULCER
     Dosage: 40 MILLIGRAM, QD
     Route: 048
  15. FUROSEMIDE. [Concomitant]
     Active Substance: FUROSEMIDE
     Dosage: UNK
     Route: 065
  16. COAGULATION FACTOR VIII (PORCINE, RECOMBINANT) [Suspect]
     Active Substance: ANTIHEMOPHILIC FACTOR PORCINE, B-DOMAIN TRUNCATED RECOMBINANT
     Indication: ACQUIRED HAEMOPHILIA
     Dosage: 100 INTERNATIONAL UNIT/KILOGRAM
     Route: 042
     Dates: start: 20180220, end: 20180220
  17. FACTOR VII [Concomitant]
     Active Substance: COAGULATION FACTOR VII HUMAN
     Dosage: UNK
     Route: 065
  18. COAGULATION FACTOR VIII (PORCINE, RECOMBINANT) [Suspect]
     Active Substance: ANTIHEMOPHILIC FACTOR PORCINE, B-DOMAIN TRUNCATED RECOMBINANT
     Indication: ACQUIRED HAEMOPHILIA
     Dosage: 100 INTERNATIONAL UNIT/KILOGRAM
     Route: 042
     Dates: start: 20180220, end: 20180220
  19. COAGULATION FACTOR VIII (PORCINE, RECOMBINANT) [Suspect]
     Active Substance: ANTIHEMOPHILIC FACTOR PORCINE, B-DOMAIN TRUNCATED RECOMBINANT
     Indication: HAEMORRHAGE
     Dosage: 200 INTERNATIONAL UNIT/KILOGRAM
     Route: 042
     Dates: start: 20180221
  20. EPTACOG ALFA [Concomitant]
     Active Substance: COAGULATION FACTOR VIIA RECOMBINANT HUMAN
     Indication: HAEMORRHAGE
     Dosage: 12 MILLIGRAM, QID
     Route: 042
     Dates: start: 20180131, end: 20180209
  21. FACTOR VIII INHIBITOR BYPASSING FRACTION [Concomitant]
     Active Substance: ANTI-INHIBITOR COAGULANT COMPLEX
     Indication: HAEMORRHAGE
     Dosage: 1000 INTERNATIONAL UNIT, QD
     Route: 042
     Dates: start: 20180207, end: 20180207
  22. FACTOR VIII INHIBITOR BYPASSING FRACTION [Concomitant]
     Active Substance: ANTI-INHIBITOR COAGULANT COMPLEX
     Dosage: 2000 INTERNATIONAL UNIT, QD
     Route: 042
     Dates: start: 20180208, end: 20180320

REACTIONS (5)
  - Underdose [Recovered/Resolved]
  - Intestinal obstruction [Recovered/Resolved]
  - Haematoma [Recovered/Resolved]
  - Therapy non-responder [Not Recovered/Not Resolved]
  - Inhibiting antibodies [Not Recovered/Not Resolved]

NARRATIVE: CASE EVENT DATE: 20180220
